FAERS Safety Report 24320490 (Version 1)
Quarter: 2024Q3

REPORT INFORMATION
  Report Type: Spontaneous
  Country: US (occurrence: US)
  Receive Date: 20240915
  Receipt Date: 20240915
  Transmission Date: 20241017
  Serious: No
  Sender: ABBVIE
  Company Number: US-ABBVIE-5923762

PATIENT
  Sex: Female

DRUGS (1)
  1. URSO [Suspect]
     Active Substance: URSODIOL
     Indication: Primary biliary cholangitis
     Route: 065

REACTIONS (1)
  - Drug ineffective [Unknown]
